FAERS Safety Report 17071887 (Version 3)
Quarter: 2020Q1

REPORT INFORMATION
  Report Type: Report from Study
  Country: US (occurrence: US)
  Receive Date: 20191125
  Receipt Date: 20200106
  Transmission Date: 20200409
  Serious: Yes (Hospitalization)
  Sender: FDA-Public Use
  Company Number: US-PFIZER INC-2019501420

PATIENT
  Age: 3 Year
  Sex: Female
  Weight: 14.5 kg

DRUGS (10)
  1. CYTARABINE. [Suspect]
     Active Substance: CYTARABINE
     Dosage: 50 MG, 3X/DAY, MILLIGRAM/SQ. METER
     Route: 058
     Dates: start: 20191112
  2. DOXORUBICIN HCL [Suspect]
     Active Substance: DOXORUBICIN HYDROCHLORIDE
     Indication: ACUTE LYMPHOCYTIC LEUKAEMIA
     Dosage: 16 MG, ONCE
     Route: 042
     Dates: start: 20191008
  3. VINCRISTINE SULFATE. [Suspect]
     Active Substance: VINCRISTINE SULFATE
     Indication: ACUTE LYMPHOCYTIC LEUKAEMIA
     Dosage: 1 MG, ONCE
     Route: 042
     Dates: start: 20191008
  4. THIOGUANINE [Suspect]
     Active Substance: THIOGUANINE
     Indication: ACUTE LYMPHOCYTIC LEUKAEMIA
     Dosage: 40 MG, 1X/DAY
     Route: 048
     Dates: start: 20191112
  5. METHOTREXATE SODIUM. [Suspect]
     Active Substance: METHOTREXATE SODIUM
     Indication: ACUTE LYMPHOCYTIC LEUKAEMIA
     Dosage: 12 MG, ONCE
     Route: 037
     Dates: start: 20191008
  6. CYTARABINE. [Suspect]
     Active Substance: CYTARABINE
     Indication: ACUTE LYMPHOCYTIC LEUKAEMIA
     Dosage: 47 MG, ONCE, MILLIGRAM/SQ. METER
     Route: 042
     Dates: start: 20191112
  7. PEGASPARGASE [Suspect]
     Active Substance: PEGASPARGASE
     Indication: ACUTE LYMPHOCYTIC LEUKAEMIA
     Dosage: 1575 IU (IU/M2), ONCE
     Route: 042
     Dates: start: 20191011
  8. DEXAMETHASONE. [Suspect]
     Active Substance: DEXAMETHASONE
     Indication: ACUTE LYMPHOCYTIC LEUKAEMIA
     Dosage: 3 MG, 2X/DAY (TABLET)
     Route: 048
     Dates: start: 20191008
  9. CYCLOPHOSPHAMIDE. [Suspect]
     Active Substance: CYCLOPHOSPHAMIDE
     Indication: ACUTE LYMPHOCYTIC LEUKAEMIA
     Dosage: 630 MG, ONCE
     Route: 042
     Dates: start: 20191112
  10. INCB018424 [Suspect]
     Active Substance: RUXOLITINIB
     Indication: ACUTE LYMPHOCYTIC LEUKAEMIA
     Dosage: 30 MG, 2X/DAY (TABLET)
     Route: 048
     Dates: start: 20191008

REACTIONS (2)
  - Febrile neutropenia [Recovered/Resolved]
  - Febrile neutropenia [Recovered/Resolved]

NARRATIVE: CASE EVENT DATE: 20191030
